FAERS Safety Report 11171034 (Version 1)
Quarter: 2015Q2

REPORT INFORMATION
  Report Type: Spontaneous
  Country: US (occurrence: None)
  Receive Date: 20150605
  Receipt Date: 20150605
  Transmission Date: 20150821
  Serious: Yes (Disabling)
  Sender: FDA-Public Use
  Company Number: None

PATIENT
  Age: 35 Year
  Sex: Female
  Weight: 49.9 kg

DRUGS (1)
  1. YAZ [Suspect]
     Active Substance: DROSPIRENONE\ETHINYL ESTRADIOL
     Indication: ILL-DEFINED DISORDER
     Dosage: 1 PILL
     Route: 048
     Dates: start: 20100111, end: 20100825

REACTIONS (5)
  - Vomiting [None]
  - Abdominal pain [None]
  - Cholelithiasis [None]
  - Nausea [None]
  - Hepatic enzyme increased [None]

NARRATIVE: CASE EVENT DATE: 20100821
